FAERS Safety Report 21837204 (Version 6)
Quarter: 2025Q4

REPORT INFORMATION
  Report Type: Report from Study
  Country: US (occurrence: US)
  Receive Date: 20230109
  Receipt Date: 20251107
  Transmission Date: 20260118
  Serious: Yes (Hospitalization, Other)
  Sender: TAKEDA
  Company Number: US-TAKEDA-2022TUS078414

PATIENT
  Age: 54 Year
  Sex: Female

DRUGS (2)
  1. VEDOLIZUMAB [Suspect]
     Active Substance: VEDOLIZUMAB
     Indication: Crohn^s disease
     Dosage: 300 MILLIGRAM
  2. VEDOLIZUMAB [Suspect]
     Active Substance: VEDOLIZUMAB
     Dosage: 300 MILLIGRAM

REACTIONS (22)
  - Intestinal obstruction [Recovered/Resolved]
  - Pyoderma [Recovering/Resolving]
  - Hypoxia [Unknown]
  - Rectal haemorrhage [Recovered/Resolved]
  - Skull fracture [Recovered/Resolved]
  - Loss of consciousness [Recovered/Resolved]
  - Fatigue [Not Recovered/Not Resolved]
  - Multiple allergies [Not Recovered/Not Resolved]
  - Confusional state [Unknown]
  - Vestibular disorder [Unknown]
  - Nasopharyngitis [Not Recovered/Not Resolved]
  - Bronchitis [Not Recovered/Not Resolved]
  - Animal bite [Recovered/Resolved]
  - Haemorrhage [Recovered/Resolved]
  - Sleep apnoea syndrome [Unknown]
  - Dyspnoea [Unknown]
  - Dizziness [Unknown]
  - Rib fracture [Unknown]
  - Pelvic pain [Unknown]
  - Fall [Unknown]
  - Fistula [Unknown]
  - Ulcer [Unknown]

NARRATIVE: CASE EVENT DATE: 20221026
